FAERS Safety Report 13040020 (Version 1)
Quarter: 2016Q4

REPORT INFORMATION
  Report Type: Report from Study
  Country: CA (occurrence: CA)
  Receive Date: 20161219
  Receipt Date: 20161219
  Transmission Date: 20170207
  Serious: Yes (Hospitalization, Other)
  Sender: FDA-Public Use
  Company Number: CA-JNJFOC-20160919479

PATIENT
  Age: 43 Year
  Sex: Female
  Weight: 64 kg

DRUGS (15)
  1. TEMAZEPAM. [Concomitant]
     Active Substance: TEMAZEPAM
     Dosage: 1 OR 2 CAPSULES AS NECESSARY
     Route: 065
  2. AZATHIOPRINE. [Concomitant]
     Active Substance: AZATHIOPRINE
     Dosage: 1 TABLET AS NECCESARY
     Route: 065
  3. LAMISIL [Concomitant]
     Active Substance: TERBINAFINE HYDROCHLORIDE
     Dosage: 1 TABLET AS NECCESARY
     Route: 065
  4. ALPRAZOLAM. [Concomitant]
     Active Substance: ALPRAZOLAM
     Dosage: 1 TABLET AS NECESSARY
     Route: 061
  5. REMICADE [Suspect]
     Active Substance: INFLIXIMAB
     Indication: CROHN^S DISEASE
     Route: 042
     Dates: start: 20161017
  6. ORPHENADRINE [Concomitant]
     Active Substance: ORPHENADRINE
     Route: 065
  7. SULFATRIM [Concomitant]
     Active Substance: SULFAMETHOXAZOLE\TRIMETHOPRIM
     Route: 065
  8. ARISTOCOR [Concomitant]
     Route: 061
  9. REMICADE [Suspect]
     Active Substance: INFLIXIMAB
     Indication: CROHN^S DISEASE
     Dosage: 2ND INFUSION
     Route: 042
     Dates: start: 20160919
  10. REMICADE [Suspect]
     Active Substance: INFLIXIMAB
     Indication: CROHN^S DISEASE
     Dosage: EVERY 0-2-6 WEEKS(INDUCTION)
     Route: 042
     Dates: start: 20160905
  11. RATIO-TECNAL [Concomitant]
     Dosage: 1 TABLET AS NECCESARY
     Route: 065
  12. FUCIDIN [Concomitant]
     Active Substance: FUSIDIC ACID
     Route: 061
  13. IMURAN [Concomitant]
     Active Substance: AZATHIOPRINE
     Route: 065
  14. VENLAFAXIN [Concomitant]
     Active Substance: VENLAFAXINE HYDROCHLORIDE
     Dosage: 1 TABLET AS NECCESARY
     Route: 065
  15. CORTIFOAM [Concomitant]
     Active Substance: HYDROCORTISONE ACETATE
     Route: 065

REACTIONS (3)
  - Haematochezia [Not Recovered/Not Resolved]
  - Salmonellosis [Recovered/Resolved]
  - Migraine [Recovered/Resolved]

NARRATIVE: CASE EVENT DATE: 201610
